FAERS Safety Report 9536128 (Version 1)
Quarter: 2013Q2

REPORT INFORMATION
  Report Type: Spontaneous
  Country: US (occurrence: None)
  Receive Date: 20130507
  Receipt Date: 20130507
  Transmission Date: 20140414
  Serious: Yes (Other)
  Sender: FDA-Public Use
  Company Number: PHEH2013US001281

PATIENT
  Age: 70 Year
  Sex: Male

DRUGS (12)
  1. AFINITOR [Suspect]
     Indication: RENAL CANCER
     Route: 048
     Dates: start: 20121204
  2. ALLOPURINOL (ALLOPURINOL) [Concomitant]
  3. FINASTERIDE (FINASTERIDE) [Concomitant]
  4. FUROSEMIDE (FUROSEMIDE) [Concomitant]
  5. TERAZOSIN (TERAZOSIN) [Concomitant]
  6. AMLODIPINE (AMLODIPINE) [Concomitant]
  7. METOPROLOL (METOPROLOL) [Concomitant]
  8. HYDROCODONE (HYDROCODONE) [Concomitant]
  9. GARLIC (ALLIUM SATIVUM) [Concomitant]
  10. VITAMIN D3 (COLECALCIFEROL) [Concomitant]
  11. TYLENOL (PARACETAMOL) [Concomitant]
  12. ASPIRIN (ACETYLSALICYLIC ACID) [Concomitant]

REACTIONS (4)
  - Rash erythematous [None]
  - Rash papular [None]
  - Epistaxis [None]
  - Stomatitis [None]
